FAERS Safety Report 21133355 (Version 3)
Quarter: 2022Q3

REPORT INFORMATION
  Report Type: Spontaneous
  Country: FR (occurrence: FR)
  Receive Date: 20220726
  Receipt Date: 20220822
  Transmission Date: 20221027
  Serious: Yes (Life-Threatening, Hospitalization)
  Sender: FDA-Public Use
  Company Number: None

PATIENT
  Age: 55 Year
  Sex: Female

DRUGS (7)
  1. FLUOXETINE HYDROCHLORIDE [Suspect]
     Active Substance: FLUOXETINE HYDROCHLORIDE
     Indication: Product used for unknown indication
     Dosage: 20 MG, BID (1-1-0)
     Route: 048
     Dates: start: 20191126, end: 20191126
  2. OLANZAPINE [Suspect]
     Active Substance: OLANZAPINE
     Indication: Product used for unknown indication
     Dosage: 20 MG, QD (20 MILLIGRAM IN 1 DAY, 0-0-1)
     Route: 048
     Dates: start: 20191126, end: 20191126
  3. BROMAZEPAM [Suspect]
     Active Substance: BROMAZEPAM
     Indication: Product used for unknown indication
     Dosage: 6 MG (6 MILLIGRAM IN, 1/2-1/2-1/2-1/2-1)
     Route: 048
     Dates: start: 20191126, end: 20191126
  4. ACETAMINOPHEN [Suspect]
     Active Substance: ACETAMINOPHEN
     Indication: Product used for unknown indication
     Dosage: 138 G, TOTAL (138 GRAM IN 1 TOTAL)
     Route: 048
     Dates: start: 20191126, end: 20191126
  5. LEVOTHYROXINE SODIUM [Concomitant]
     Active Substance: LEVOTHYROXINE SODIUM
     Indication: Product used for unknown indication
     Dosage: 125 UG, QD (125 MICROGRAM IN 1 DAY, 1-0-0)
     Route: 065
  6. LORMETAZEPAM [Concomitant]
     Active Substance: LORMETAZEPAM
     Indication: Product used for unknown indication
     Dosage: 2 MG, QD (2 MILLIGRAM IN 1 DAY, 0-0-1)
     Route: 065
  7. OXAZEPAM [Concomitant]
     Active Substance: OXAZEPAM
     Indication: Product used for unknown indication
     Dosage: 50 MG, QD (50 MILLIGRAM IN 1 DAY, 0-0-1)
     Route: 065

REACTIONS (3)
  - Hepatocellular injury [Recovered/Resolved]
  - Renal tubular necrosis [Recovered/Resolved]
  - Toxicity to various agents [Recovered/Resolved]

NARRATIVE: CASE EVENT DATE: 20191126
